FAERS Safety Report 4712442-5 (Version None)
Quarter: 2005Q3

REPORT INFORMATION
  Report Type: 
  Country: None (occurrence: None)
  Receive Date: 20050711
  Receipt Date: 20050627
  Transmission Date: 20060218
  Serious: Yes (Other)
  Sender: FDA-Public Use
  Company Number: US-YAMANOUCHI-YPA20050306

PATIENT
  Age: 59 Year
  Sex: Female
  Weight: 92.9874 kg

DRUGS (7)
  1. VESICARE [Suspect]
     Indication: URINARY INCONTINENCE
     Dosage: 10 MG QD PO
     Route: 048
     Dates: start: 20050601
  2. VESICARE [Suspect]
     Indication: URINARY INCONTINENCE
     Dosage: 5 MG QD PO
     Route: 048
     Dates: start: 20050601, end: 20050601
  3. TOPAMAX [Concomitant]
  4. PHENOBARBITAL [Concomitant]
  5. HYDROCODONE BITARTRATE [Concomitant]
  6. LORAZEPAM [Concomitant]
  7. MULTI-VITAMINS [Concomitant]

REACTIONS (6)
  - AMNESIA [None]
  - CONFUSIONAL STATE [None]
  - HEADACHE [None]
  - MOOD ALTERED [None]
  - PETIT MAL EPILEPSY [None]
  - URINARY TRACT INFECTION [None]
